FAERS Safety Report 13886853 (Version 1)
Quarter: 2017Q3

REPORT INFORMATION
  Report Type: Report from Study
  Country: US (occurrence: US)
  Receive Date: 20170821
  Receipt Date: 20170821
  Transmission Date: 20171127
  Serious: Yes (Death, Other)
  Sender: FDA-Public Use
  Company Number: US-JNJFOC-20170816149

PATIENT

DRUGS (2)
  1. DOXORUBICIN HYDROCHLORIDE. [Suspect]
     Active Substance: DOXORUBICIN HYDROCHLORIDE
     Indication: SOFT TISSUE SARCOMA
     Dosage: FOR 6-96 HOURS ON DAY 1 OF EVERY 21-DAY CYCLE FOR UP TO SIX CYCLES
     Route: 065
  2. EVOFOSFAMIDE [Suspect]
     Active Substance: EVOFOSFAMIDE
     Indication: SOFT TISSUE SARCOMA
     Dosage: FOR 30?60 MIN ON DAYS 1 AND 8 OF EVERY 21-DAY CYCLE FOR UP TO SIX CYCLES
     Route: 042

REACTIONS (54)
  - Neutropenia [Unknown]
  - Anaemia [Unknown]
  - Lymphocyte count decreased [Unknown]
  - Oedema peripheral [Unknown]
  - Pyrexia [Unknown]
  - Alopecia [Unknown]
  - Skin hyperpigmentation [Unknown]
  - Back pain [Unknown]
  - Dehydration [Unknown]
  - Pain in extremity [Unknown]
  - Urinary tract infection [Unknown]
  - Off label use [Unknown]
  - Constipation [Unknown]
  - Palmar-plantar erythrodysaesthesia syndrome [Unknown]
  - Dry mouth [Unknown]
  - Nausea [Unknown]
  - Product use in unapproved indication [Unknown]
  - Death [Fatal]
  - Decreased appetite [Unknown]
  - Haemorrhoids [Unknown]
  - Stomatitis [Unknown]
  - Cough [Unknown]
  - Completed suicide [Fatal]
  - Sepsis [Fatal]
  - Pneumonia [Fatal]
  - Pancytopenia [Unknown]
  - Pulmonary embolism [Unknown]
  - Ejection fraction decreased [Unknown]
  - Cardiopulmonary failure [Fatal]
  - Septic shock [Fatal]
  - Thrombocytopenia [Unknown]
  - Hypokalaemia [Unknown]
  - Leukopenia [Unknown]
  - Arthralgia [Unknown]
  - Dizziness [Unknown]
  - Dysgeusia [Unknown]
  - Meningitis [Fatal]
  - Abdominal pain [Unknown]
  - Dry skin [Unknown]
  - Dyspepsia [Unknown]
  - Dyspnoea [Unknown]
  - Fatigue [Unknown]
  - Headache [Unknown]
  - Hyponatraemia [Unknown]
  - Vomiting [Unknown]
  - Weight decreased [Unknown]
  - Insomnia [Unknown]
  - Asthenia [Unknown]
  - Cardiac failure congestive [Fatal]
  - Lactic acidosis [Fatal]
  - Febrile neutropenia [Unknown]
  - Cellulitis [Unknown]
  - Hypophosphataemia [Unknown]
  - Diarrhoea [Unknown]
